FAERS Safety Report 8204414-3 (Version None)
Quarter: 2012Q1

REPORT INFORMATION
  Report Type: 
  Country: None (occurrence: None)
  Receive Date: 20120313
  Receipt Date: 20120313
  Transmission Date: 20120608
  Serious: Yes (Other)
  Sender: FDA-Public Use
  Company Number: None

PATIENT
  Age: 50 Year
  Sex: Male
  Weight: 85.728 kg

DRUGS (1)
  1. METOPROLOL SUCCINATE [Suspect]
     Indication: BLOOD PRESSURE INCREASED
     Dosage: 1 TAB
     Route: 048
     Dates: start: 20061201, end: 20120329

REACTIONS (5)
  - MOOD ALTERED [None]
  - AMNESIA [None]
  - FEELING ABNORMAL [None]
  - MENTAL DISORDER [None]
  - MENTAL STATUS CHANGES [None]
